FAERS Safety Report 5941586-5 (Version None)
Quarter: 2008Q4

REPORT INFORMATION
  Report Type: 
  Country: None (occurrence: None)
  Receive Date: 20081103
  Receipt Date: 20081009
  Transmission Date: 20090506
  Serious: Yes (Hospitalization)
  Sender: FDA-Public Use
  Company Number: 20080290

PATIENT
  Age: 52 Year
  Sex: Female

DRUGS (4)
  1. VENOFER [Suspect]
     Indication: ANAEMIA
     Dosage: 300MG, 2 DOSES OF  INTRAVENOUS DRIP
     Route: 041
     Dates: start: 20080723, end: 20080725
  2. FOLIC ACID [Concomitant]
  3. ACETAMINOPHEN [Concomitant]
  4. ASPEGIC 1000 [Concomitant]

REACTIONS (10)
  - BLOOD CULTURE POSITIVE [None]
  - CHILLS [None]
  - DIZZINESS [None]
  - DYSARTHRIA [None]
  - HEADACHE [None]
  - INFECTION [None]
  - PYREXIA [None]
  - RED BLOOD CELL SEDIMENTATION RATE INCREASED [None]
  - SOMNOLENCE [None]
  - TINNITUS [None]
